FAERS Safety Report 13960280 (Version 1)
Quarter: 2017Q3

REPORT INFORMATION
  Report Type: Spontaneous
  Country: US (occurrence: US)
  Receive Date: 20170912
  Receipt Date: 20170912
  Transmission Date: 20171128
  Serious: Yes (Other)
  Sender: FDA-Public Use
  Company Number: US-009507513-1709USA002021

PATIENT
  Age: 64 Year
  Sex: Female

DRUGS (1)
  1. ZEPATIER [Suspect]
     Active Substance: ELBASVIR\GRAZOPREVIR
     Dosage: 1 A DAY 50/100MG
     Route: 048

REACTIONS (4)
  - Migraine with aura [Unknown]
  - Malaise [Unknown]
  - Blindness transient [Unknown]
  - Nausea [Unknown]
